FAERS Safety Report 8965405 (Version 1)
Quarter: 2012Q4

REPORT INFORMATION
  Report Type: 
  Country: UA (occurrence: UA)
  Receive Date: 20121214
  Receipt Date: 20121214
  Transmission Date: 20130627
  Serious: Yes (Hospitalization)
  Sender: FDA-Public Use
  Company Number: PHHY2012UA115250

PATIENT
  Age: 50 Year
  Sex: Female

DRUGS (8)
  1. RETARPEN [Suspect]
     Indication: PROPHYLAXIS
     Dosage: 24000000 IU, UNK
     Route: 030
     Dates: start: 20080204
  2. BISOPROLOL [Concomitant]
  3. VEROSPIRON [Concomitant]
  4. FUROSEMIDE [Concomitant]
  5. CORGLYCON [Concomitant]
  6. ASPARA K [Concomitant]
  7. LISORIL [Concomitant]
  8. INSULIN [Concomitant]

REACTIONS (6)
  - Asphyxia [Recovered/Resolved]
  - Hyperaemia [Recovered/Resolved]
  - Blood pressure decreased [Recovered/Resolved]
  - Face oedema [Recovered/Resolved]
  - Pruritus [Recovered/Resolved]
  - Oedema genital [None]
